FAERS Safety Report 4279879-2 (Version None)
Quarter: 2004Q1

REPORT INFORMATION
  Report Type: 
  Country: None (occurrence: None)
  Receive Date: 20040128
  Receipt Date: 20040116
  Transmission Date: 20041129
  Serious: Yes (Hospitalization)
  Sender: FDA-Public Use
  Company Number: PHBS2004DE00981

PATIENT
  Age: 41 Year
  Sex: Female

DRUGS (4)
  1. METOPROLOL TARTRATE [Suspect]
     Indication: HYPERTENSION
     Dosage: 50 MG/DAY
  2. LOSARTAN [Suspect]
     Indication: HYPERTENSION
     Dosage: 100 MG/DAY
  3. HYDROCHLOROTHIAZIDE [Suspect]
     Indication: HYPERTENSION
     Dosage: 25 MG/DAY
  4. BETAMETHASONE [Concomitant]

REACTIONS (4)
  - CAESAREAN SECTION [None]
  - CARDIOVASCULAR DISORDER [None]
  - DRUG EXPOSURE DURING PREGNANCY [None]
  - OLIGOHYDRAMNIOS [None]
